FAERS Safety Report 12846977 (Version 3)
Quarter: 2016Q4

REPORT INFORMATION
  Report Type: Spontaneous
  Country: US (occurrence: US)
  Receive Date: 20161014
  Receipt Date: 20161124
  Transmission Date: 20170207
  Serious: Yes (Other)
  Sender: FDA-Public Use
  Company Number: US-JNJFOC-20161011044

PATIENT
  Age: 51 Year
  Sex: Male

DRUGS (2)
  1. AVELOX [Suspect]
     Active Substance: MOXIFLOXACIN HYDROCHLORIDE
     Indication: SINUS DISORDER
     Route: 048
     Dates: start: 2008
  2. LEVAQUIN [Suspect]
     Active Substance: LEVOFLOXACIN
     Indication: SINUS DISORDER
     Route: 048
     Dates: start: 200808

REACTIONS (7)
  - Skin disorder [Unknown]
  - Visual impairment [Unknown]
  - Neuropathy peripheral [Unknown]
  - Cardiovascular disorder [Unknown]
  - Neuropsychiatric symptoms [Unknown]
  - Musculoskeletal disorder [Unknown]
  - Hypoacusis [Unknown]

NARRATIVE: CASE EVENT DATE: 200808
